FAERS Safety Report 8888193 (Version 2)
Quarter: 2012Q4

REPORT INFORMATION
  Report Type: Report from Study
  Country: US (occurrence: US)
  Receive Date: 20121106
  Receipt Date: 20121126
  Transmission Date: 20130627
  Serious: No
  Sender: FDA-Public Use
  Company Number: US-VERTEX PHARMACEUTICAL INC.-2012-024044

PATIENT
  Age: 57 None
  Sex: Male
  Weight: 113 kg

DRUGS (4)
  1. VX-950 (TELAPREVIR) [Suspect]
     Indication: HEPATITIS C
     Dosage: 750 mg, tid
     Route: 048
     Dates: start: 20121019
  2. PEGASYS [Concomitant]
     Indication: HEPATITIS C
     Dosage: 180 ?g, qw
     Route: 058
     Dates: start: 20121019
  3. PEGASYS [Concomitant]
     Dosage: 135 ?g, UNK
  4. RIBAVIRIN [Concomitant]
     Indication: HEPATITIS C
     Dosage: 600 mg, bid
     Route: 048
     Dates: start: 20121019

REACTIONS (4)
  - White blood cell count decreased [Not Recovered/Not Resolved]
  - Rash maculo-papular [Recovered/Resolved]
  - Dysgeusia [Not Recovered/Not Resolved]
  - Pruritus [Unknown]
